FAERS Safety Report 10136401 (Version 1)
Quarter: 2014Q2

REPORT INFORMATION
  Report Type: Spontaneous
  Country: US (occurrence: US)
  Receive Date: 20140429
  Receipt Date: 20140429
  Transmission Date: 20141212
  Serious: No
  Sender: FDA-Public Use
  Company Number: US-B.I. PHARMACEUTICALS,INC./RIDGEFIELD-2014-BI-18122BP

PATIENT
  Sex: Female

DRUGS (2)
  1. MIRAPEX [Suspect]
     Indication: DEPRESSION
     Dosage: STRENGTH: 0.25/ DAILY DOSE: 0.75
     Route: 065
  2. MIRAPEX [Suspect]
     Dosage: INCREASED DOSE
     Route: 065

REACTIONS (1)
  - Depression [Recovered/Resolved]
